FAERS Safety Report 5193732-1 (Version None)
Quarter: 2006Q4

REPORT INFORMATION
  Report Type: 
  Country: None (occurrence: None)
  Receive Date: 20061228
  Receipt Date: 20061222
  Transmission Date: 20070319
  Serious: Yes (Other)
  Sender: FDA-Public Use
  Company Number: US-GLAXOSMITHKLINE-A0632547A

PATIENT
  Age: 53 Year
  Sex: Female

DRUGS (8)
  1. TUMS SMOOTH DISSOLVE TABLETS, ASSORTED FRUIT [Suspect]
     Indication: EPIGASTRIC DISCOMFORT
     Dosage: 3TAB AT NIGHT
     Route: 048
     Dates: start: 20061214, end: 20061221
  2. CIPRO [Concomitant]
     Dosage: 250MG TWICE PER DAY
  3. DIOVAN HCT [Concomitant]
  4. TOPROL-XL [Concomitant]
     Dosage: 25MG PER DAY
  5. PREMARIN [Concomitant]
     Dosage: .3MG PER DAY
  6. ZITHROMAX [Concomitant]
  7. PENICILLIN [Concomitant]
  8. FLAGYL [Concomitant]

REACTIONS (4)
  - ASTHMA [None]
  - BRONCHITIS [None]
  - HYPERSENSITIVITY [None]
  - SUFFOCATION FEELING [None]
